FAERS Safety Report 4991567-3 (Version None)
Quarter: 2006Q2

REPORT INFORMATION
  Report Type: 
  Country: None (occurrence: None)
  Receive Date: 20060502
  Receipt Date: 20060316
  Transmission Date: 20061013
  Serious: No
  Sender: FDA-Public Use
  Company Number: STA-AE-06-015

PATIENT
  Age: 77 Year
  Sex: Male

DRUGS (2)
  1. ATENOLOL [Suspect]
     Indication: HYPERTENSION
  2. NIFEDIPINE [Suspect]
     Indication: HYPERTENSION

REACTIONS (9)
  - APHASIA [None]
  - ASTHENIA [None]
  - CARDIOGENIC SHOCK [None]
  - HYPOTENSION [None]
  - MULTIPLE DRUG OVERDOSE [None]
  - NODAL ARRHYTHMIA [None]
  - PULMONARY CONGESTION [None]
  - PULMONARY OEDEMA [None]
  - VENOUS PRESSURE JUGULAR INCREASED [None]
